FAERS Safety Report 4303304-6 (Version None)
Quarter: 2004Q1

REPORT INFORMATION
  Report Type: 
  Country: None (occurrence: None)
  Receive Date: 20040223
  Receipt Date: 20040210
  Transmission Date: 20041129
  Serious: Yes (Hospitalization)
  Sender: FDA-Public Use
  Company Number: BE-JNJFOC-20040202620

PATIENT
  Age: 59 Year
  Sex: Male

DRUGS (11)
  1. INFLIXIMAB, RECOMBINANT- BLINDED (INFLIXIMAB, RECOMBINANT) LYOPHILIZED [Suspect]
     Indication: COLITIS ULCERATIVE
     Dosage: INTRAVENOUS
     Route: 042
     Dates: start: 20020924
  2. INFLIXIMAB, RECOMBINANT- BLINDED (INFLIXIMAB, RECOMBINANT) LYOPHILIZED [Suspect]
     Indication: COLITIS ULCERATIVE
     Dosage: INTRAVENOUS
     Route: 042
     Dates: start: 20021008
  3. INFLIXIMAB, RECOMBINANT- BLINDED (INFLIXIMAB, RECOMBINANT) LYOPHILIZED [Suspect]
     Indication: COLITIS ULCERATIVE
     Dosage: INTRAVENOUS
     Route: 042
     Dates: start: 20021105
  4. INFLIXIMAB, RECOMBINANT- BLINDED (INFLIXIMAB, RECOMBINANT) LYOPHILIZED [Suspect]
     Indication: COLITIS ULCERATIVE
     Dosage: INTRAVENOUS
     Route: 042
     Dates: start: 20021230
  5. INFLIXIMAB, RECOMBINANT- BLINDED (INFLIXIMAB, RECOMBINANT) LYOPHILIZED [Suspect]
     Indication: COLITIS ULCERATIVE
     Dosage: INTRAVENOUS
     Route: 042
     Dates: start: 20030225
  6. INFLIXIMAB, RECOMBINANT- BLINDED (INFLIXIMAB, RECOMBINANT) LYOPHILIZED [Suspect]
     Indication: COLITIS ULCERATIVE
     Dosage: INTRAVENOUS
     Route: 042
     Dates: start: 20030422
  7. INFLIXIMAB, RECOMBINANT- BLINDED (INFLIXIMAB, RECOMBINANT) LYOPHILIZED [Suspect]
     Indication: COLITIS ULCERATIVE
     Dosage: INTRAVENOUS
     Route: 042
     Dates: start: 20030611
  8. PLACEBO (PLACEBO) LYOPHILIZED POWDER [Concomitant]
  9. AZATHIOPRINE [Concomitant]
  10. MESALAMINE (MESALAZINE) [Concomitant]
  11. AMLODIPINE [Concomitant]

REACTIONS (1)
  - INGUINAL HERNIA, OBSTRUCTIVE [None]
